FAERS Safety Report 17529671 (Version 1)
Quarter: 2020Q1

REPORT INFORMATION
  Report Type: Report from Study
  Country: CA (occurrence: CA)
  Receive Date: 20200311
  Receipt Date: 20200311
  Transmission Date: 20200409
  Serious: Yes (Other)
  Sender: FDA-Public Use
  Company Number: CA-TEVA-2020-CA-1199373

PATIENT
  Age: 48 Year
  Sex: Male

DRUGS (15)
  1. COUMADIN [Concomitant]
     Active Substance: WARFARIN SODIUM
  2. PREZISTA [Concomitant]
     Active Substance: DARUNAVIR ETHANOLATE
  3. TERBINAFINE. [Concomitant]
     Active Substance: TERBINAFINE
  4. VITAMIN C [Concomitant]
     Active Substance: ASCORBIC ACID
  5. INTELENCE [Concomitant]
     Active Substance: ETRAVIRINE
  6. D-ALPHA TOCOPHEROL [Concomitant]
     Active Substance: .ALPHA.-TOCOPHEROL, D-
  7. HUMALOG [Concomitant]
     Active Substance: INSULIN LISPRO
  8. HYDROXYCHLOROQUINE SULFATE. [Concomitant]
     Active Substance: HYDROXYCHLOROQUINE SULFATE
  9. METHOTREXATE. [Suspect]
     Active Substance: METHOTREXATE
     Indication: PRODUCT USED FOR UNKNOWN INDICATION
     Route: 065
  10. DICLOFENAC [Concomitant]
     Active Substance: DICLOFENAC
  11. VALTREX [Concomitant]
     Active Substance: VALACYCLOVIR HYDROCHLORIDE
  12. ACTEMRA [Suspect]
     Active Substance: TOCILIZUMAB
     Indication: RHEUMATOID ARTHRITIS
     Route: 042
  13. FOLIC ACID. [Concomitant]
     Active Substance: FOLIC ACID
  14. ALTACE [Concomitant]
     Active Substance: RAMIPRIL
  15. NORVIR [Concomitant]
     Active Substance: RITONAVIR

REACTIONS (11)
  - Muscle spasms [Not Recovered/Not Resolved]
  - Urticaria [Not Recovered/Not Resolved]
  - Wound [Not Recovered/Not Resolved]
  - Dizziness [Not Recovered/Not Resolved]
  - Pain [Not Recovered/Not Resolved]
  - Headache [Not Recovered/Not Resolved]
  - Nausea [Not Recovered/Not Resolved]
  - Therapeutic product effect incomplete [Not Recovered/Not Resolved]
  - White blood cell count decreased [Not Recovered/Not Resolved]
  - Infusion related reaction [Not Recovered/Not Resolved]
  - Nasopharyngitis [Not Recovered/Not Resolved]
